FAERS Safety Report 8509981-8 (Version None)
Quarter: 2012Q3

REPORT INFORMATION
  Report Type: 
  Country: None (occurrence: None)
  Receive Date: 20120713
  Receipt Date: 20120706
  Transmission Date: 20120928
  Serious: Yes (Other)
  Sender: FDA-Public Use
  Company Number: US-ASTRAZENECA-2012SE46716

PATIENT
  Age: 65 Year
  Sex: Female

DRUGS (4)
  1. NEXIUM [Suspect]
     Route: 048
  2. SEROQUEL [Suspect]
     Indication: NERVOUSNESS
     Route: 048
  3. CRESTOR [Suspect]
     Route: 048
  4. TOPROL-XL [Concomitant]

REACTIONS (5)
  - DIABETES MELLITUS [None]
  - WEIGHT INCREASED [None]
  - HYPERTENSION [None]
  - GASTROINTESTINAL BACTERIAL INFECTION [None]
  - MALAISE [None]
